FAERS Safety Report 20836054 (Version 1)
Quarter: 2022Q2

REPORT INFORMATION
  Report Type: Report from Study
  Country: US (occurrence: US)
  Receive Date: 20220516
  Receipt Date: 20220516
  Transmission Date: 20220720
  Serious: Yes (Hospitalization, Other)
  Sender: FDA-Public Use
  Company Number: US-BRISTOL-MYERS SQUIBB COMPANY-2022-013169

PATIENT
  Age: 77 Year
  Sex: Male
  Weight: 93.9 kg

DRUGS (27)
  1. AZACITIDINE [Suspect]
     Active Substance: AZACITIDINE
     Indication: Myelodysplastic syndrome
     Dosage: FOR 7 DAYS OUT OF THE FIRST 9 DAYS OF EACH 28-DAY CYCLE (75 MG/M2)
     Route: 042
     Dates: start: 20210805, end: 20211221
  2. AZACITIDINE [Suspect]
     Active Substance: AZACITIDINE
     Dosage: FOR 7 DAYS OUT OF THE FIRST 9 DAYS OF EACH 28-DAY CYCLE (75 MG/M2)
     Route: 042
     Dates: start: 20220118
  3. VENETOCLAX [Suspect]
     Active Substance: VENETOCLAX
     Indication: Myelodysplastic syndrome
  4. AZELASTINE [Concomitant]
     Active Substance: AZELASTINE
     Indication: Hypersensitivity
     Dosage: 274 MILLIEQUIVALENTS (137 MILLIEQUIVALENTS,2 IN 1 D)
     Route: 045
     Dates: start: 20210820
  5. AZELASTINE [Concomitant]
     Active Substance: AZELASTINE
     Indication: Pneumonia
     Dosage: 274 MCG (137 MCG,2  IN 1 D)
     Route: 045
     Dates: start: 20210820, end: 20210914
  6. LEVAQUIN [Concomitant]
     Active Substance: LEVOFLOXACIN
     Indication: Prophylaxis
     Dosage: 1000 MG (500 MG,2 IN 1 D)
     Route: 048
     Dates: start: 20210805
  7. CLOBETASOL [Concomitant]
     Active Substance: CLOBETASOL
     Indication: Acute febrile neutrophilic dermatosis
     Dosage: 2 DOSAGE FORMS (1 DOSAGE FORMS,2 IN 1 D)
     Dates: start: 20210820
  8. ALLOPURINOL [Concomitant]
     Active Substance: ALLOPURINOL
     Indication: Blood uric acid
     Dosage: 300 MG (300 MG,1 IN 1 D)
     Route: 048
     Dates: start: 20210820
  9. ALLOPURINOL [Concomitant]
     Active Substance: ALLOPURINOL
     Indication: Chondrocalcinosis pyrophosphate
     Dosage: 1 IN 1 D
     Route: 048
     Dates: start: 20210805
  10. ONDANSETRON [Concomitant]
     Active Substance: ONDANSETRON
     Indication: Nausea
     Dosage: 8 MG (8 MG,1 IN 1 D)
     Route: 048
     Dates: start: 20210808
  11. ONDANSETRON [Concomitant]
     Active Substance: ONDANSETRON
     Dosage: 2 IN 1 D
     Route: 048
  12. NYSTATIN [Concomitant]
     Active Substance: NYSTATIN
     Indication: Infection prophylaxis
     Dosage: 100,000 UNITS/ML (4 IN 1 D)
     Route: 048
     Dates: start: 20210907, end: 20210914
  13. NYSTATIN [Concomitant]
     Active Substance: NYSTATIN
     Indication: Pneumonia
     Dosage: 100,000 UNIT/ML (4 IN 1 D)
     Route: 048
     Dates: start: 20210922
  14. COLCHICINE [Concomitant]
     Active Substance: COLCHICINE
     Indication: Acute febrile neutrophilic dermatosis
     Dosage: 0.6 MG (0.6 MG,1 IN 1 D)
     Route: 048
     Dates: start: 20210805
  15. ESCITALOPRAM OXALATE [Concomitant]
     Active Substance: ESCITALOPRAM OXALATE
     Indication: Anxiety
     Dosage: 20 MG (20 MG,1 IN 1 D)
     Route: 048
  16. FAMOTIDINE [Concomitant]
     Active Substance: FAMOTIDINE
     Indication: Gastrooesophageal reflux disease
     Dosage: 20 MG (20 MG,1 IN 1 D)
     Route: 048
     Dates: start: 20210805
  17. LEVOFLOXACIN [Concomitant]
     Active Substance: LEVOFLOXACIN
     Indication: Acute febrile neutrophilic dermatosis
     Dosage: 1 IN 1 D
     Route: 048
     Dates: start: 20210907, end: 20210914
  18. LEVOFLOXACIN [Concomitant]
     Active Substance: LEVOFLOXACIN
     Indication: Pneumonia
     Dosage: (750 GM,1 IN 1 D)
     Route: 048
     Dates: start: 20210907, end: 20210914
  19. MESALAMINE [Concomitant]
     Active Substance: MESALAMINE
     Indication: Colitis ulcerative
     Dosage: 1 IN 1 D
     Route: 048
     Dates: start: 20210805
  20. MESALAMINE [Concomitant]
     Active Substance: MESALAMINE
     Dosage: 2.4 GM (1.2 GM,2 IN 1 D)
     Route: 048
     Dates: start: 20210611
  21. PANTOPRAZOLE [Concomitant]
     Active Substance: PANTOPRAZOLE
     Indication: Gastrooesophageal reflux disease
     Dosage: 1 IN 2 D
     Route: 048
     Dates: start: 20210805
  22. PREDNISONE [Concomitant]
     Active Substance: PREDNISONE
     Indication: Chondrocalcinosis pyrophosphate
     Dosage: 2 IN 1 D
     Route: 048
     Dates: start: 20210805
  23. LORAZEPAM [Concomitant]
     Active Substance: LORAZEPAM
     Indication: Anxiety
     Dosage: 3 IN 1 D
     Route: 048
     Dates: start: 20210805
  24. MAGNESIUM [Concomitant]
     Active Substance: MAGNESIUM
     Indication: Hypomagnesaemia
     Dosage: 71.5 MG (71.5 MG,1 IN 1 D)
     Route: 048
     Dates: start: 20210820
  25. LORATADINE [Concomitant]
     Active Substance: LORATADINE
     Indication: Hypersensitivity
     Dosage: 10 MG (10 MG,1 IN 1 D)
     Route: 048
     Dates: start: 20210805
  26. LISINOPRIL [Concomitant]
     Active Substance: LISINOPRIL
     Indication: Hypertension
     Dosage: 30 MG (30 MG,1 IN 1 D)
     Route: 048
     Dates: start: 20210805
  27. CELECOXIB [Concomitant]
     Active Substance: CELECOXIB
     Indication: Acute febrile neutrophilic dermatosis
     Dosage: 400 MG (200 MG,2 IN 1 D)
     Dates: start: 20210805

REACTIONS (1)
  - Clostridium difficile colitis [Recovered/Resolved]

NARRATIVE: CASE EVENT DATE: 20211230
